FAERS Safety Report 17913019 (Version 1)
Quarter: 2020Q2

REPORT INFORMATION
  Report Type: Spontaneous
  Country: US (occurrence: US)
  Receive Date: 20200618
  Receipt Date: 20200618
  Transmission Date: 20200714
  Serious: Yes (Hospitalization, Other)
  Sender: FDA-Public Use
  Company Number: NVSC2020US167160

PATIENT
  Age: 66 Year
  Sex: Female

DRUGS (1)
  1. TACROLIMUS. [Suspect]
     Active Substance: TACROLIMUS
     Indication: PROPHYLAXIS AGAINST GRAFT VERSUS HOST DISEASE
     Route: 065

REACTIONS (8)
  - H1N1 influenza [Unknown]
  - Malignant neoplasm progression [Unknown]
  - Legionella infection [Unknown]
  - Product use in unapproved indication [Unknown]
  - Pneumonia [Unknown]
  - Angioimmunoblastic T-cell lymphoma [Unknown]
  - Chronic myelomonocytic leukaemia [Unknown]
  - Sepsis [Unknown]
